FAERS Safety Report 10647780 (Version 1)
Quarter: 2014Q4

REPORT INFORMATION
  Report Type: Spontaneous
  Country: US (occurrence: US)
  Receive Date: 20141212
  Receipt Date: 20141212
  Transmission Date: 20150529
  Serious: No
  Sender: FDA-Public Use
  Company Number: US-009507513-1412USA006125

PATIENT
  Age: 32 Year
  Sex: Female

DRUGS (4)
  1. DARUNAVIR [Suspect]
     Active Substance: DARUNAVIR
     Dosage: DAILY DOSE 1200
     Route: 048
  2. ISENTRESS [Suspect]
     Active Substance: RALTEGRAVIR POTASSIUM
     Dosage: DAILY DOSE 800
     Route: 048
  3. RITONAVIR. [Suspect]
     Active Substance: RITONAVIR
     Dosage: DAILY DOSE 200
     Route: 048
  4. ETRAVIRINE [Suspect]
     Active Substance: ETRAVIRINE
     Dosage: DAILY DOSE 400
     Route: 048

REACTIONS (1)
  - Exposure during pregnancy [Recovered/Resolved]
